FAERS Safety Report 7819805-X (Version None)
Quarter: 2011Q4

REPORT INFORMATION
  Report Type: 
  Country: None (occurrence: None)
  Receive Date: 20111018
  Receipt Date: 20110114
  Transmission Date: 20120403
  Serious: No
  Sender: FDA-Public Use
  Company Number: US-ASTRAZENECA-2011SE02667

PATIENT
  Age: 5 Year
  Sex: Female
  Weight: 18.6 kg

DRUGS (3)
  1. XOPENEX [Concomitant]
  2. SYMBICORT [Suspect]
     Indication: ASTHMA
     Dosage: 640 MCG BID
     Route: 055
     Dates: start: 20101228
  3. ALBUTEROL [Concomitant]

REACTIONS (3)
  - PSYCHOMOTOR HYPERACTIVITY [None]
  - INCREASED UPPER AIRWAY SECRETION [None]
  - INSOMNIA [None]
